FAERS Safety Report 19391319 (Version 1)
Quarter: 2021Q2

REPORT INFORMATION
  Report Type: Report from Study
  Country: None (occurrence: GR)
  Receive Date: 20210609
  Receipt Date: 20210609
  Transmission Date: 20210717
  Serious: Yes (Hospitalization)
  Sender: FDA-Public Use
  Company Number: GR-ABBVIE-21K-066-3938472-00

PATIENT
  Age: 72 Year
  Sex: Female

DRUGS (6)
  1. AZAPIN [Concomitant]
     Indication: DEPRESSION
     Route: 048
  2. SEROPRAM [Concomitant]
     Indication: DEPRESSION
     Route: 048
  3. DUODOPA [Suspect]
     Active Substance: CARBIDOPA\LEVODOPA
  4. DUODOPA [Suspect]
     Active Substance: CARBIDOPA\LEVODOPA
     Indication: PARKINSON^S DISEASE
     Dosage: MORNING DOSE: 12.5 ML, CONTINUOUS RATE: 3.5 ML/H, EXTRA DOSE: 2.5 ML.
     Route: 050
     Dates: start: 20150714
  5. MADOPAR [Concomitant]
     Active Substance: BENSERAZIDE HYDROCHLORIDE\LEVODOPA
     Indication: PARKINSON^S DISEASE
     Dosage: UNIT DOSE: (100 + 25) MG; FORM STRENGTH: (200 + 50) MG
     Route: 048
  6. MIRAPEXIN [Concomitant]
     Active Substance: PRAMIPEXOLE
     Indication: PARKINSON^S DISEASE
     Route: 048

REACTIONS (3)
  - Hypophagia [Not Recovered/Not Resolved]
  - Communication disorder [Not Recovered/Not Resolved]
  - Epilepsy [Not Recovered/Not Resolved]

NARRATIVE: CASE EVENT DATE: 20210601
